FAERS Safety Report 14275907 (Version 1)
Quarter: 2017Q4

REPORT INFORMATION
  Report Type: Spontaneous
  Country: US (occurrence: US)
  Receive Date: 20171211
  Receipt Date: 20171211
  Transmission Date: 20180321
  Serious: Yes (Other)
  Sender: FDA-Public Use
  Company Number: US-OTSUKA-2017_010644

PATIENT
  Age: 52 Year
  Sex: Female

DRUGS (9)
  1. ABILIFY [Suspect]
     Active Substance: ARIPIPRAZOLE
     Indication: DEPRESSION
     Dosage: UNK
     Route: 065
  2. ABILIFY [Suspect]
     Active Substance: ARIPIPRAZOLE
     Indication: SOCIAL ANXIETY DISORDER
     Dosage: UNK
     Route: 065
  3. ABILIFY [Suspect]
     Active Substance: ARIPIPRAZOLE
     Indication: SCHIZOPHRENIA
     Dosage: UNK
     Route: 065
     Dates: start: 20130301, end: 20170217
  4. ABILIFY [Suspect]
     Active Substance: ARIPIPRAZOLE
     Indication: ANXIETY
     Dosage: UNK
     Route: 065
  5. ABILIFY [Suspect]
     Active Substance: ARIPIPRAZOLE
     Indication: OBSESSIVE-COMPULSIVE DISORDER
     Dosage: UNK
     Route: 065
  6. ABILIFY [Suspect]
     Active Substance: ARIPIPRAZOLE
     Indication: BIPOLAR DISORDER
     Dosage: UNK
     Route: 065
  7. ABILIFY [Suspect]
     Active Substance: ARIPIPRAZOLE
     Indication: ATTENTION DEFICIT/HYPERACTIVITY DISORDER
     Dosage: UNK
     Route: 065
  8. ABILIFY [Suspect]
     Active Substance: ARIPIPRAZOLE
     Indication: MAJOR DEPRESSION
     Dosage: UNK
     Route: 065
  9. ABILIFY [Suspect]
     Active Substance: ARIPIPRAZOLE
     Indication: EATING DISORDER
     Dosage: UNK
     Route: 065

REACTIONS (6)
  - Impulsive behaviour [Not Recovered/Not Resolved]
  - Gambling [Not Recovered/Not Resolved]
  - Suicide attempt [Not Recovered/Not Resolved]
  - Suicidal ideation [Not Recovered/Not Resolved]
  - Obsessive-compulsive disorder [Not Recovered/Not Resolved]
  - Psychosexual disorder [Not Recovered/Not Resolved]

NARRATIVE: CASE EVENT DATE: 20170505
